FAERS Safety Report 25672356 (Version 2)
Quarter: 2025Q4

REPORT INFORMATION
  Report Type: Spontaneous
  Country: US (occurrence: US)
  Receive Date: 20250812
  Receipt Date: 20251010
  Transmission Date: 20260118
  Serious: No
  Sender: SANOFI AVENTIS
  Company Number: US-SA-2025SA231894

PATIENT
  Age: 46 Year
  Sex: Female
  Weight: 94.55 kg

DRUGS (5)
  1. FABRAZYME [Suspect]
     Active Substance: AGALSIDASE BETA
     Indication: Fabry^s disease
     Dosage: 110 MG, QOW
     Route: 042
     Dates: start: 20200923
  2. SODIUM CHLORIDE [Concomitant]
     Active Substance: SODIUM CHLORIDE
  3. EPINEPHRINE [Concomitant]
     Active Substance: EPINEPHRINE
     Dosage: UNK
  4. STERILE WATER [Concomitant]
     Active Substance: WATER
  5. SODIUM CHLORIDE [Concomitant]
     Active Substance: SODIUM CHLORIDE
     Dosage: UNK

REACTIONS (1)
  - Weight decreased [Unknown]

NARRATIVE: CASE EVENT DATE: 20250801
